FAERS Safety Report 9212528 (Version 3)
Quarter: 2013Q2

REPORT INFORMATION
  Report Type: Spontaneous
  Country: US (occurrence: US)
  Receive Date: 20130405
  Receipt Date: 20130620
  Transmission Date: 20140414
  Serious: Yes (Hospitalization)
  Sender: FDA-Public Use
  Company Number: US-009507513-1304USA000759

PATIENT
  Age: 45 Year
  Sex: Female

DRUGS (10)
  1. SINGULAIR [Suspect]
     Indication: ASTHMA
     Dosage: UNK
     Route: 048
     Dates: start: 200303
  2. SINGULAIR [Suspect]
     Indication: CHRONIC OBSTRUCTIVE PULMONARY DISEASE
  3. PEPCID [Concomitant]
  4. XOLAIR [Concomitant]
  5. OXYGEN [Concomitant]
  6. HYDROXYZINE [Concomitant]
  7. CHLORTAB [Concomitant]
  8. ALOC [Concomitant]
  9. NEXIUM [Concomitant]
  10. CHLOR-TRIMETON [Concomitant]

REACTIONS (5)
  - Asthma [Unknown]
  - Rash pruritic [Unknown]
  - Drug ineffective [Unknown]
  - Gastrooesophageal reflux disease [Unknown]
  - Palpitations [Unknown]
